FAERS Safety Report 9521160 (Version 1)
Quarter: 2013Q1

REPORT INFORMATION
  Report Type: Spontaneous
  Country: US (occurrence: None)
  Receive Date: 20130305
  Receipt Date: 20130305
  Transmission Date: 20140127
  Serious: Yes (Other)
  Sender: FDA-Public Use
  Company Number: 163-21880-12073061

PATIENT
  Age: 62 Year
  Sex: Male

DRUGS (7)
  1. REVLIMID (LENALIDOMIDE) (25 MILLIGRAM, CAPSULES) [Suspect]
     Indication: PLASMA CELL MYELOMA
     Dosage: 14 IN 14 D
     Route: 048
     Dates: start: 20120221
  2. CORICIDIN COLD AND FLU (FRENADOL) [Concomitant]
  3. VELCADE [Concomitant]
  4. DECADRON (DEXAMETHASONE) [Concomitant]
  5. ASA (ACETYLSALICYLIC ACID) [Concomitant]
  6. ZOMETA (ZOLEDRONIC ACID) [Concomitant]
  7. PERCOCET (OXYCOCET) [Concomitant]

REACTIONS (2)
  - Hypoaesthesia [None]
  - Fatigue [None]
